FAERS Safety Report 5932485-3 (Version None)
Quarter: 2008Q4

REPORT INFORMATION
  Report Type: 
  Country: None (occurrence: None)
  Receive Date: 20081028
  Receipt Date: 20081022
  Transmission Date: 20090506
  Serious: Yes (Hospitalization)
  Sender: FDA-Public Use
  Company Number: SE-AVENTIS-200820033GDDC

PATIENT
  Age: 83 Year
  Sex: Male

DRUGS (4)
  1. FLAGYL [Suspect]
     Route: 048
     Dates: start: 20080829, end: 20080901
  2. CIPROFLOXACIN [Suspect]
     Dates: start: 20080829, end: 20080901
  3. RAMIPRIL [Concomitant]
     Dosage: DOSE: UNK
  4. ALLOPURINOL [Concomitant]
     Dosage: DOSE: UNK

REACTIONS (1)
  - LEUKOPENIA [None]
